FAERS Safety Report 6252051-2 (Version None)
Quarter: 2009Q2

REPORT INFORMATION
  Report Type: 
  Country: None (occurrence: None)
  Receive Date: 20090630
  Receipt Date: 20051004
  Transmission Date: 20091009
  Serious: Yes (Hospitalization)
  Sender: FDA-Public Use
  Company Number: US-ROCHE-638699

PATIENT
  Sex: Male

DRUGS (12)
  1. ENFUVIRTIDE [Suspect]
     Route: 065
     Dates: start: 20040915, end: 20080108
  2. KALETRA [Concomitant]
     Dates: start: 20040915
  3. TRUVADA [Concomitant]
     Dates: start: 20040915, end: 20080814
  4. VIDEX EC [Concomitant]
     Dates: start: 20040915, end: 20080815
  5. NORVIR [Concomitant]
     Dates: end: 20080814
  6. PREZISTA [Concomitant]
     Dates: end: 20080814
  7. BACTRIM DS [Concomitant]
     Dates: start: 20040314, end: 20080814
  8. LEVAQUIN [Concomitant]
     Dates: start: 20041126, end: 20041210
  9. LEVAQUIN [Concomitant]
     Dates: start: 20041130, end: 20041210
  10. LEVAQUIN [Concomitant]
     Dates: start: 20061206, end: 20080101
  11. LEVAQUIN [Concomitant]
     Dates: start: 20080627, end: 20080704
  12. DOXYCYCLINE [Concomitant]
     Dates: start: 20060228, end: 20080814

REACTIONS (5)
  - CHRONIC OBSTRUCTIVE PULMONARY DISEASE [None]
  - HYPOXIA [None]
  - PULMONARY EMBOLISM [None]
  - RESPIRATORY FAILURE [None]
  - RIB FRACTURE [None]
